FAERS Safety Report 25390426 (Version 1)
Quarter: 2025Q2

REPORT INFORMATION
  Report Type: Spontaneous
  Country: CN (occurrence: CN)
  Receive Date: 20250603
  Receipt Date: 20250603
  Transmission Date: 20250717
  Serious: Yes (Other)
  Sender: PFIZER
  Company Number: CN-PFIZER INC-PV202500064464

PATIENT
  Age: 82 Year
  Sex: Female

DRUGS (1)
  1. TIGECYCLINE [Suspect]
     Active Substance: TIGECYCLINE
     Indication: Anti-infective therapy
     Dosage: 50 MG, 2X/DAY
     Route: 042
     Dates: start: 20250519, end: 20250524

REACTIONS (4)
  - Blood fibrinogen decreased [Recovered/Resolved]
  - Prothrombin time prolonged [Recovering/Resolving]
  - Coagulopathy [Recovering/Resolving]
  - Faecal occult blood positive [Recovering/Resolving]

NARRATIVE: CASE EVENT DATE: 20250501
